FAERS Safety Report 13884107 (Version 3)
Quarter: 2018Q3

REPORT INFORMATION
  Report Type: Spontaneous
  Country: US (occurrence: US)
  Receive Date: 20170821
  Receipt Date: 20180906
  Transmission Date: 20181010
  Serious: No
  Sender: FDA-Public Use
  Company Number: US-ASTRAZENECA-2017SE83041

PATIENT
  Age: 905 Month
  Sex: Female

DRUGS (4)
  1. TUDORZA PRESSAIR [Suspect]
     Active Substance: ACLIDINIUM BROMIDE
     Indication: CHRONIC OBSTRUCTIVE PULMONARY DISEASE
     Route: 055
  2. BEVESPI AEROSPHERE [Suspect]
     Active Substance: FORMOTEROL FUMARATE\GLYCOPYRROLATE
     Indication: CHRONIC OBSTRUCTIVE PULMONARY DISEASE
     Dosage: 9/4.8 MCG 2 PUFFS, TWO TIMES A DAY
     Route: 055
     Dates: start: 201807
  3. BEVESPI AEROSPHERE [Suspect]
     Active Substance: FORMOTEROL FUMARATE\GLYCOPYRROLATE
     Indication: CHRONIC OBSTRUCTIVE PULMONARY DISEASE
     Dosage: 9/4.8 MCG 2 PUFFS, TWO TIMES A DAY
     Route: 055
     Dates: start: 201708
  4. ANORO ELLIPTA [Concomitant]
     Active Substance: UMECLIDINIUM BROMIDE\VILANTEROL TRIFENATATE

REACTIONS (7)
  - Cough [Recovered/Resolved]
  - Product quality issue [Not Recovered/Not Resolved]
  - Suffocation feeling [Recovered/Resolved]
  - Intentional product misuse [Not Recovered/Not Resolved]
  - Peripheral swelling [Recovered/Resolved]
  - Erythema [Recovered/Resolved]
  - Musculoskeletal pain [Unknown]

NARRATIVE: CASE EVENT DATE: 201708
